FAERS Safety Report 7406358-3 (Version None)
Quarter: 2011Q2

REPORT INFORMATION
  Report Type: 
  Country: None (occurrence: None)
  Receive Date: 20110411
  Receipt Date: 20110406
  Transmission Date: 20111010
  Serious: Yes (Death, Other)
  Sender: FDA-Public Use
  Company Number: GB-PFIZER INC-2010102487

PATIENT
  Age: 33 Year
  Sex: Male

DRUGS (1)
  1. CHAMPIX [Suspect]
     Indication: SMOKING CESSATION THERAPY
     Dosage: UNK
     Dates: start: 20100710

REACTIONS (3)
  - HOMICIDE [None]
  - COMPLETED SUICIDE [None]
  - BLOOD ALCOHOL INCREASED [None]
